FAERS Safety Report 7554857-6 (Version None)
Quarter: 2011Q2

REPORT INFORMATION
  Report Type: 
  Country: None (occurrence: None)
  Receive Date: 20110617
  Receipt Date: 20110607
  Transmission Date: 20111010
  Serious: Yes (Hospitalization)
  Sender: FDA-Public Use
  Company Number: BR-GENENTECH-319499

PATIENT
  Sex: Male
  Weight: 70 kg

DRUGS (3)
  1. RITUXAN [Suspect]
     Indication: POLYMYOSITIS
     Dosage: 1000 MG, X2
     Route: 050
  2. METHOTREXATE [Concomitant]
     Indication: PRODUCT USED FOR UNKNOWN INDICATION
     Dosage: 15 MG, 1/WEEK
     Route: 048
     Dates: start: 20100101
  3. PREDNISONE [Concomitant]
     Indication: PRODUCT USED FOR UNKNOWN INDICATION
     Dosage: 40 MG, QD
     Route: 048

REACTIONS (4)
  - DIARRHOEA [None]
  - THROAT IRRITATION [None]
  - DIARRHOEA HAEMORRHAGIC [None]
  - PYREXIA [None]
